FAERS Safety Report 4664792-9 (Version None)
Quarter: 2005Q2

REPORT INFORMATION
  Report Type: 
  Country: None (occurrence: None)
  Receive Date: 20050517
  Receipt Date: 20050517
  Transmission Date: 20051028
  Serious: Yes (Hospitalization)
  Sender: FDA-Public Use
  Company Number: None

PATIENT
  Age: 60 Year
  Sex: Male

DRUGS (1)
  1. HYDROXYUREA [Suspect]
     Indication: MYELOPROLIFERATIVE DISORDER
     Dosage: 2500MG DAILY PO
     Route: 048
     Dates: start: 20040801, end: 20041001

REACTIONS (2)
  - ANAEMIA [None]
  - THROMBOCYTOPENIA [None]
